FAERS Safety Report 25301115 (Version 1)
Quarter: 2025Q2

REPORT INFORMATION
  Report Type: Spontaneous
  Country: US (occurrence: None)
  Receive Date: 20250510
  Receipt Date: 20250510
  Transmission Date: 20250716
  Serious: Yes (Other)
  Sender: FDA-CTU
  Company Number: None

PATIENT
  Age: 78 Year
  Sex: Female

DRUGS (6)
  1. IMATINIB MESYLATE [Suspect]
     Active Substance: IMATINIB MESYLATE
     Dosage: FREQUENCY : DAILY;?
     Route: 048
     Dates: start: 20210213
  2. CICLOPIROX SHA 1(l/o [Concomitant]
  3. CLOBETASOL SHA 0.05?/o [Concomitant]
  4. LETROZOLE [Concomitant]
     Active Substance: LETROZOLE
  5. LETROZOLE [Concomitant]
     Active Substance: LETROZOLE
  6. PIMECROLIMUS CRE 1% [Concomitant]

REACTIONS (2)
  - Pancreaticoduodenectomy [None]
  - Therapy interrupted [None]

NARRATIVE: CASE EVENT DATE: 20250425
